FAERS Safety Report 10672435 (Version 1)
Quarter: 2014Q4

REPORT INFORMATION
  Report Type: Spontaneous
  Country: CA (occurrence: CA)
  Receive Date: 20141223
  Receipt Date: 20141223
  Transmission Date: 20150529
  Serious: Yes (Other)
  Sender: FDA-Public Use
  Company Number: CA-GE HEALTHCARE MEDICAL DIAGNOSTICS-OMPQ-PR-1412S-1586

PATIENT
  Age: 64 Year
  Sex: Female

DRUGS (2)
  1. OMNIPAQUE [Suspect]
     Active Substance: IOHEXOL
     Indication: HEPATIC CYST
     Route: 042
     Dates: start: 20141211, end: 20141211
  2. OMNIPAQUE [Suspect]
     Active Substance: IOHEXOL
     Indication: DIAGNOSTIC PROCEDURE

REACTIONS (2)
  - Urticaria [Unknown]
  - Erythema [Unknown]

NARRATIVE: CASE EVENT DATE: 20141211
